FAERS Safety Report 10249310 (Version 1)
Quarter: 2014Q2

REPORT INFORMATION
  Report Type: Report from Study
  Country: PL (occurrence: PL)
  Receive Date: 20140620
  Receipt Date: 20140620
  Transmission Date: 20141212
  Serious: Yes (Hospitalization)
  Sender: FDA-Public Use
  Company Number: PL-TEVA-489623USA

PATIENT
  Sex: Female
  Weight: 45 kg

DRUGS (4)
  1. BENDAMUSTINE HYDROCHLORIDE [Suspect]
     Indication: CHRONIC LYMPHOCYTIC LEUKAEMIA
     Route: 042
     Dates: start: 20131118, end: 20131119
  2. ENALAPRILI MALEAS [Concomitant]
     Indication: HYPERTENSION
     Route: 048
     Dates: start: 20131113
  3. ALLOPURINOLUM [Concomitant]
     Indication: PROPHYLAXIS
     Route: 048
     Dates: start: 20131113
  4. FUROSEMIDUM                        /00032601/ [Concomitant]
     Indication: PRODUCT USED FOR UNKNOWN INDICATION
     Route: 048
     Dates: start: 20131113

REACTIONS (6)
  - Pyrexia [Recovered/Resolved]
  - Hypotension [Recovered/Resolved]
  - Dehydration [Recovered/Resolved]
  - Rash generalised [Not Recovered/Not Resolved]
  - Pancytopenia [Recovered/Resolved]
  - Agranulocytosis [Recovered/Resolved]
